FAERS Safety Report 9239845 (Version 2)
Quarter: 2014Q1

REPORT INFORMATION
  Report Type: Spontaneous
  Country: US (occurrence: US)
  Receive Date: 20130418
  Receipt Date: 20140325
  Transmission Date: 20141002
  Serious: Yes (Hospitalization)
  Sender: FDA-Public Use
  Company Number: US-B.I. PHARMACEUTICALS,INC./RIDGEFIELD-2013-BI-10151BP

PATIENT
  Age: 89 Year
  Sex: Female
  Weight: 49.9 kg

DRUGS (1)
  1. PRADAXA [Suspect]
     Indication: ATRIAL FIBRILLATION
     Route: 065
     Dates: start: 20110503, end: 201108

REACTIONS (3)
  - Haemorrhage [Unknown]
  - Haemorrhagic stroke [Unknown]
  - Epistaxis [Unknown]
